FAERS Safety Report 8798797 (Version 1)
Quarter: 2012Q4

REPORT INFORMATION
  Report Type: 
  Country: US (occurrence: US)
  Receive Date: 20120920
  Receipt Date: 20120920
  Transmission Date: 20130627
  Serious: Yes (Death, Hospitalization)
  Sender: FDA-Public Use
  Company Number: US-GLAXOSMITHKLINE-A0817486A

PATIENT
  Age: 69 Year
  Sex: Female
  Weight: 118 kg

DRUGS (5)
  1. AVANDIA [Suspect]
     Indication: DIABETES MELLITUS
     Dosage: 8MG Per day
     Route: 048
     Dates: start: 20010629, end: 200710
  2. GLYBURIDE [Concomitant]
  3. METFORMIN [Concomitant]
  4. VYTORIN [Concomitant]
  5. ATENOLOL [Concomitant]

REACTIONS (5)
  - Cardiac arrest [Fatal]
  - Acute myocardial infarction [Fatal]
  - Cardiac failure congestive [Unknown]
  - Cardiogenic shock [Unknown]
  - Multi-organ failure [Fatal]
